FAERS Safety Report 5078121-2 (Version None)
Quarter: 2006Q3

REPORT INFORMATION
  Report Type: 
  Country: None (occurrence: None)
  Receive Date: 20060811
  Receipt Date: 20060120
  Transmission Date: 20061208
  Serious: Yes (Death, Life-Threatening, Hospitalization, Other)
  Sender: FDA-Public Use
  Company Number: DE-ABBOTT-06P-062-0322966-00

PATIENT
  Sex: Female
  Weight: 47 kg

DRUGS (16)
  1. HUMIRA [Suspect]
     Indication: RHEUMATOID ARTHRITIS
     Route: 058
     Dates: start: 20041201, end: 20050613
  2. LEFLUNOMIDE [Suspect]
     Indication: RHEUMATOID ARTHRITIS
     Route: 048
     Dates: start: 20010101, end: 20050613
  3. LEFLUNOMIDE [Concomitant]
     Route: 048
     Dates: end: 20051101
  4. STEROIDS [Concomitant]
     Indication: RHEUMATOID ARTHRITIS
     Route: 048
  5. PREDNISOLONE [Concomitant]
     Indication: RHEUMATOID ARTHRITIS
     Route: 048
     Dates: start: 19950101
  6. DICLOFENAC [Concomitant]
     Indication: RHEUMATOID ARTHRITIS
     Route: 048
  7. ALENDRONAT [Concomitant]
     Indication: DRUG USE FOR UNKNOWN INDICATION
  8. CARBIMAZOLE [Concomitant]
     Indication: DRUG USE FOR UNKNOWN INDICATION
  9. CALCIUM GLUCONATE [Concomitant]
     Indication: DRUG USE FOR UNKNOWN INDICATION
  10. ERGOCALCIFEROL [Concomitant]
     Indication: DRUG USE FOR UNKNOWN INDICATION
  11. NEBIVOLOL HCL [Concomitant]
     Indication: DRUG USE FOR UNKNOWN INDICATION
  12. RAMIPRIL [Concomitant]
     Indication: DRUG USE FOR UNKNOWN INDICATION
  13. PANTOPRAZOLE SODIUM [Concomitant]
     Indication: DRUG USE FOR UNKNOWN INDICATION
  14. DIHYDROCODEINE BITARTRATE INJ [Concomitant]
     Indication: DRUG USE FOR UNKNOWN INDICATION
  15. HYDROCODONE BITARTRATE [Concomitant]
     Indication: DRUG USE FOR UNKNOWN INDICATION
  16. ENOXAPARIN SODIUM [Concomitant]
     Indication: DRUG USE FOR UNKNOWN INDICATION

REACTIONS (14)
  - ANAEMIA [None]
  - CHILLS [None]
  - COAGULOPATHY [None]
  - GENERAL PHYSICAL HEALTH DETERIORATION [None]
  - LOBAR PNEUMONIA [None]
  - LUNG ABSCESS [None]
  - PATHOGEN RESISTANCE [None]
  - PLEURAL EFFUSION [None]
  - PNEUMONIA [None]
  - RENAL FAILURE ACUTE [None]
  - RESPIRATORY FAILURE [None]
  - RIGHT VENTRICULAR FAILURE [None]
  - SEPTIC SHOCK [None]
  - SHOCK HAEMORRHAGIC [None]
